FAERS Safety Report 6171056-3 (Version None)
Quarter: 2009Q2

REPORT INFORMATION
  Report Type: 
  Country: None (occurrence: None)
  Receive Date: 20090429
  Receipt Date: 20090417
  Transmission Date: 20091009
  Serious: Yes (Hospitalization)
  Sender: FDA-Public Use
  Company Number: AR-JNJFOC-20090306746

PATIENT
  Sex: Female
  Weight: 72 kg

DRUGS (18)
  1. GOLIMUMAB [Suspect]
     Route: 058
  2. GOLIMUMAB [Suspect]
     Route: 058
  3. GOLIMUMAB [Suspect]
     Route: 058
  4. GOLIMUMAB [Suspect]
     Indication: RHEUMATOID ARTHRITIS
     Route: 058
  5. GOLIMUMAB [Suspect]
     Route: 042
  6. GOLIMUMAB [Suspect]
     Route: 042
  7. GOLIMUMAB [Suspect]
     Route: 042
  8. GOLIMUMAB [Suspect]
     Route: 042
  9. GOLIMUMAB [Suspect]
     Route: 042
  10. GOLIMUMAB [Suspect]
     Route: 042
  11. PLACEBO [Suspect]
     Indication: RHEUMATOID ARTHRITIS
     Dosage: WEEK 16
     Route: 042
  12. METHOTREXATE [Suspect]
     Indication: RHEUMATOID ARTHRITIS
     Route: 048
  13. PLACEBO [Suspect]
     Route: 048
  14. AMOXICILINE [Concomitant]
     Route: 048
  15. FOLIC ACID [Concomitant]
     Indication: PROPHYLAXIS
     Route: 048
  16. NAPROXEN [Concomitant]
     Indication: RHEUMATOID ARTHRITIS
     Route: 048
  17. PREDNISONE [Concomitant]
     Indication: RHEUMATOID ARTHRITIS
     Route: 048
  18. VENORUTON [Concomitant]
     Route: 048

REACTIONS (1)
  - INTERVERTEBRAL DISCITIS [None]
